FAERS Safety Report 8019365-7 (Version None)
Quarter: 2012Q1

REPORT INFORMATION
  Report Type: 
  Country: None (occurrence: None)
  Receive Date: 20120103
  Receipt Date: 20111220
  Transmission Date: 20120608
  Serious: Yes (Other)
  Sender: FDA-Public Use
  Company Number: PHHY2011AU79643

PATIENT
  Sex: Female

DRUGS (10)
  1. ESCITALOPRAM [Concomitant]
     Dosage: 10 MG, DAILY
     Dates: start: 20110812
  2. RANITIDINE [Concomitant]
     Dosage: 300 MG, NOCTE
     Route: 048
  3. MOVIPREP [Concomitant]
     Dosage: 1 DF, TID
  4. DEPO-PROVERA [Concomitant]
     Dosage: 150 MG, (3 MONTHLY)
  5. LAMOTRIGINE [Concomitant]
     Dosage: 200 MG, BID
     Dates: start: 20040101
  6. LEVOTHYROXINE SODIUM [Concomitant]
     Dosage: 50 UG, DAILY
     Route: 048
  7. UREA [Concomitant]
  8. CLOZARIL [Suspect]
     Dosage: 700 MG,
  9. VITAMIN D [Concomitant]
     Dosage: 25 UG, DAILY
  10. CLOZARIL [Suspect]
     Dosage: 400 MG,  (100MG MANE, 100MG MIDDAY AND 200MG NOCTE).

REACTIONS (8)
  - ASTHENIA [None]
  - ANTIPSYCHOTIC DRUG LEVEL INCREASED [None]
  - HYPERTHYROIDISM [None]
  - CONVULSION [None]
  - LETHARGY [None]
  - TIC [None]
  - MYOCLONUS [None]
  - POSTICTAL STATE [None]
